FAERS Safety Report 15691580 (Version 6)
Quarter: 2019Q1

REPORT INFORMATION
  Report Type: Report from Study
  Country: US (occurrence: US)
  Receive Date: 20181205
  Receipt Date: 20190328
  Transmission Date: 20190417
  Serious: Yes (Other)
  Sender: FDA-Public Use
  Company Number: PHEH2018US050460

PATIENT
  Sex: Female
  Weight: 57.61 kg

DRUGS (1)
  1. COSENTYX [Suspect]
     Active Substance: SECUKINUMAB
     Indication: PRODUCT USED FOR UNKNOWN INDICATION
     Dosage: 300 MG, UNK
     Route: 058

REACTIONS (5)
  - Device malfunction [Unknown]
  - Ill-defined disorder [Unknown]
  - Arthritis [Unknown]
  - Fatigue [Unknown]
  - Injection site haemorrhage [Unknown]
